FAERS Safety Report 4865007-9 (Version None)
Quarter: 2005Q4

REPORT INFORMATION
  Report Type: 
  Country: None (occurrence: None)
  Receive Date: 20051223
  Receipt Date: 20051212
  Transmission Date: 20060501
  Serious: Yes (Hospitalization)
  Sender: FDA-Public Use
  Company Number: PHFR2005GB04047

PATIENT
  Age: 44 Year
  Sex: Female

DRUGS (2)
  1. VALSARTAN [Suspect]
  2. LISINOPRIL [Suspect]
     Indication: HYPERTENSION
     Route: 048

REACTIONS (6)
  - ABDOMINAL PAIN [None]
  - ASCITES [None]
  - GASTROINTESTINAL DISORDER [None]
  - NODULE [None]
  - PANCREATIC DISORDER [None]
  - SMALL BOWEL ANGIOEDEMA [None]
